FAERS Safety Report 5805744-2 (Version None)
Quarter: 2008Q3

REPORT INFORMATION
  Report Type: 
  Country: None (occurrence: None)
  Receive Date: 20080710
  Receipt Date: 20080704
  Transmission Date: 20090109
  Serious: Yes (Life-Threatening, Hospitalization, Other)
  Sender: FDA-Public Use
  Company Number: FI-ELI_LILLY_AND_COMPANY-FI200807000928

PATIENT
  Sex: Female

DRUGS (7)
  1. ZYPREXA [Suspect]
     Indication: SCHIZOPHRENIA
     Dosage: 10 MG, 3/D
     Route: 048
     Dates: end: 20080523
  2. ABSENOR [Concomitant]
     Indication: SCHIZOPHRENIA
     Dosage: 500 MG, 4/D
     Route: 048
     Dates: end: 20080523
  3. KLORPROMAN [Concomitant]
     Indication: SCHIZOPHRENIA
     Dosage: 1000 MG, DAILY (1/D)
     Route: 048
     Dates: start: 20080416, end: 20080523
  4. LEVOZIN [Concomitant]
     Indication: SCHIZOPHRENIA
     Dosage: 100 MG, 2/D
     Route: 048
     Dates: end: 20080523
  5. OPAMOX [Concomitant]
     Indication: ANXIETY
     Dosage: 30 MG, 2/D
     Route: 048
  6. OPAMOX [Concomitant]
     Dosage: 45 MG, EACH EVENING
  7. NITROFUR-C [Concomitant]
     Indication: URINARY TRACT INFECTION
     Dosage: 75 MG, DAILY (1/D)
     Route: 048
     Dates: end: 20080523

REACTIONS (6)
  - AGRANULOCYTOSIS [None]
  - INFECTION [None]
  - INFLUENZA [None]
  - LEUKOPENIA [None]
  - NEUTROPENIC SEPSIS [None]
  - OVERDOSE [None]
